FAERS Safety Report 9901921 (Version 2)
Quarter: 2014Q1

REPORT INFORMATION
  Report Type: Spontaneous
  Country: US (occurrence: US)
  Receive Date: 20140217
  Receipt Date: 20140217
  Transmission Date: 20141002
  Serious: No
  Sender: FDA-Public Use
  Company Number: US-GILEAD-2011-0043869

PATIENT
  Age: 68 Year
  Sex: Female
  Weight: 99.18 kg

DRUGS (8)
  1. LETAIRIS [Suspect]
     Indication: PULMONARY HYPERTENSION
     Dosage: 5 MG, UNK
     Route: 048
     Dates: start: 20110831, end: 20110926
  2. LASIX [Concomitant]
  3. LANTUS SOLOSTAR [Concomitant]
  4. NOVORAPID FLEXPEN [Concomitant]
  5. PLAVIX                             /01220701/ [Concomitant]
  6. ZINC [Concomitant]
  7. LISINOPRIL [Concomitant]
  8. REVATIO [Concomitant]

REACTIONS (6)
  - Fatigue [Not Recovered/Not Resolved]
  - Feeling abnormal [Unknown]
  - Swelling [Unknown]
  - Dyspnoea [Not Recovered/Not Resolved]
  - Generalised oedema [Recovered/Resolved]
  - Weight increased [Not Recovered/Not Resolved]
